FAERS Safety Report 15539478 (Version 1)
Quarter: 2018Q4

REPORT INFORMATION
  Report Type: Report from Study
  Country: US (occurrence: US)
  Receive Date: 20181023
  Receipt Date: 20181023
  Transmission Date: 20190205
  Serious: No
  Sender: FDA-Public Use
  Company Number: US-ROCHE-2200506

PATIENT
  Age: 54 Year
  Sex: Female

DRUGS (2)
  1. OCREVUS [Suspect]
     Active Substance: OCRELIZUMAB
     Indication: MULTIPLE SCLEROSIS
     Route: 042
     Dates: start: 201803
  2. OCREVUS [Suspect]
     Active Substance: OCRELIZUMAB
     Dosage: SECOND INFUSION ON 16/NOV/2018
     Route: 042

REACTIONS (4)
  - Influenza [Unknown]
  - Oropharyngeal pain [Unknown]
  - Asthenia [Unknown]
  - Syncope [Unknown]

NARRATIVE: CASE EVENT DATE: 20181008
